FAERS Safety Report 10214301 (Version 1)
Quarter: 2014Q2

REPORT INFORMATION
  Report Type: Spontaneous
  Country: US (occurrence: US)
  Receive Date: 20140603
  Receipt Date: 20140603
  Transmission Date: 20141212
  Serious: No
  Sender: FDA-Public Use
  Company Number: US-PFIZER INC-2014149177

PATIENT
  Age: 69 Year
  Sex: Female
  Weight: 64.85 kg

DRUGS (1)
  1. CELEBREX [Suspect]
     Indication: ARTHRITIS
     Dosage: UNK, DAILY
     Dates: start: 2006

REACTIONS (1)
  - Arthralgia [Unknown]
